FAERS Safety Report 11005502 (Version 1)
Quarter: 2015Q2

REPORT INFORMATION
  Report Type: Spontaneous
  Country: US (occurrence: US)
  Receive Date: 20150409
  Receipt Date: 20150409
  Transmission Date: 20150821
  Serious: No
  Sender: FDA-Public Use
  Company Number: US-ALLERGAN-1419105US

PATIENT
  Age: 71 Year
  Sex: Female

DRUGS (2)
  1. LUMIGAN [Suspect]
     Active Substance: BIMATOPROST
     Indication: GLAUCOMA
     Dosage: 2 GTT, QHS
     Route: 047
     Dates: start: 2013
  2. INSULIN [Concomitant]
     Active Substance: INSULIN NOS
     Indication: DIABETES MELLITUS

REACTIONS (9)
  - Product taste abnormal [Not Recovered/Not Resolved]
  - Cough [Not Recovered/Not Resolved]
  - Blepharal pigmentation [Unknown]
  - Growth of eyelashes [Unknown]
  - Nasopharyngitis [Unknown]
  - Vocal cord disorder [Unknown]
  - Oropharyngeal pain [Not Recovered/Not Resolved]
  - Eyelash hyperpigmentation [Unknown]
  - Productive cough [Not Recovered/Not Resolved]

NARRATIVE: CASE EVENT DATE: 2013
